FAERS Safety Report 21214608 (Version 5)
Quarter: 2022Q4

REPORT INFORMATION
  Report Type: Report from Study
  Country: DE (occurrence: DE)
  Receive Date: 20220816
  Receipt Date: 20221027
  Transmission Date: 20230113
  Serious: Yes (Hospitalization, Other)
  Sender: FDA-Public Use
  Company Number: DE-NOVARTISPH-PHHY2018DE081023

PATIENT
  Sex: Female

DRUGS (6)
  1. ERELZI [Suspect]
     Active Substance: ETANERCEPT-SZZS
     Indication: Rheumatoid arthritis
     Dosage: 50 MG
     Route: 065
     Dates: start: 202109, end: 202201
  2. SULFASALAZINE [Suspect]
     Active Substance: SULFASALAZINE
     Indication: Rheumatoid arthritis
     Dosage: 500 MG
     Route: 065
     Dates: start: 20180130
  3. METHOTREXATE [Suspect]
     Active Substance: METHOTREXATE
     Indication: Rheumatoid arthritis
     Dosage: 15 MG
     Route: 065
     Dates: start: 20170801
  4. HYDROXYCHLOROQUINE [Suspect]
     Active Substance: HYDROXYCHLOROQUINE
     Indication: Rheumatoid arthritis
     Dosage: 200 MG
     Route: 065
     Dates: start: 20180817
  5. HYDROXYCHLOROQUINE [Suspect]
     Active Substance: HYDROXYCHLOROQUINE
     Dosage: 200 MG
     Route: 065
     Dates: start: 20190123
  6. BARICITINIB [Suspect]
     Active Substance: BARICITINIB
     Indication: Rheumatoid arthritis
     Dosage: 2 MG
     Route: 065
     Dates: start: 201912, end: 202010

REACTIONS (16)
  - Radiculopathy [Recovered/Resolved]
  - Intervertebral disc protrusion [Unknown]
  - Cervicobrachial syndrome [Recovered/Resolved]
  - Normochromic normocytic anaemia [Unknown]
  - Glycosylated haemoglobin increased [Unknown]
  - Spinal pain [Unknown]
  - Rheumatoid arthritis [Recovered/Resolved]
  - Hypertensive crisis [Recovered/Resolved]
  - Chronic obstructive pulmonary disease [Unknown]
  - Cataract [Recovered/Resolved]
  - Spinal disorder [Not Recovered/Not Resolved]
  - Chondrocalcinosis [Unknown]
  - Dyspnoea [Unknown]
  - Rash [Unknown]
  - Pruritus [Recovered/Resolved]
  - Gastrointestinal infection [Recovered/Resolved]

NARRATIVE: CASE EVENT DATE: 20171125
